FAERS Safety Report 5963842-7 (Version None)
Quarter: 2008Q4

REPORT INFORMATION
  Report Type: 
  Country: None (occurrence: None)
  Receive Date: 20081124
  Receipt Date: 20081119
  Transmission Date: 20090506
  Serious: Yes (Other)
  Sender: FDA-Public Use
  Company Number: NL-TEVA-179546ISR

PATIENT
  Sex: Female
  Weight: 66 kg

DRUGS (1)
  1. PREDNISOLONE [Suspect]
     Indication: EYE INFLAMMATION

REACTIONS (1)
  - THROMBOSIS [None]
